FAERS Safety Report 21084975 (Version 1)
Quarter: 2022Q3

REPORT INFORMATION
  Report Type: Spontaneous
  Country: US (occurrence: US)
  Receive Date: 20220714
  Receipt Date: 20220714
  Transmission Date: 20221027
  Serious: Yes (Hospitalization)
  Sender: FDA-Public Use
  Company Number: US-BIOGEN-2022BI01136848

PATIENT
  Age: 29 Year
  Sex: Female

DRUGS (2)
  1. SPINRAZA [Suspect]
     Active Substance: NUSINERSEN
     Indication: Spinal muscular atrophy
     Route: 050
     Dates: start: 20180702
  2. SPINRAZA [Suspect]
     Active Substance: NUSINERSEN
     Dosage: 15TH INFUSION
     Route: 050
     Dates: start: 20220622

REACTIONS (9)
  - Feeding disorder [Not Recovered/Not Resolved]
  - Dehydration [Not Recovered/Not Resolved]
  - Cerebrospinal fluid leakage [Not Recovered/Not Resolved]
  - Post lumbar puncture syndrome [Not Recovered/Not Resolved]
  - Meningitis [Unknown]
  - Blood potassium decreased [Not Recovered/Not Resolved]
  - Blood glucose increased [Unknown]
  - Vitreous floaters [Unknown]
  - Pyrexia [Unknown]

NARRATIVE: CASE EVENT DATE: 20220601
